FAERS Safety Report 6620964-5 (Version None)
Quarter: 2010Q1

REPORT INFORMATION
  Report Type: 
  Country: None (occurrence: None)
  Receive Date: 20100308
  Receipt Date: 20100308
  Transmission Date: 20100710
  Serious: No
  Sender: FDA-Public Use
  Company Number: None

PATIENT
  Age: 62 Year
  Sex: Male
  Weight: 67.8 kg

DRUGS (1)
  1. VARDENAFIL HYDROCHLORIDE (LEVITRA) [Suspect]
     Indication: ERECTILE DYSFUNCTION
     Dosage: 10 MG PRN PO
     Route: 048
     Dates: start: 20061116, end: 20090924

REACTIONS (2)
  - TREMOR [None]
  - VISION BLURRED [None]
